FAERS Safety Report 22043902 (Version 3)
Quarter: 2023Q2

REPORT INFORMATION
  Report Type: Spontaneous
  Country: FR (occurrence: FR)
  Receive Date: 20230228
  Receipt Date: 20230517
  Transmission Date: 20230721
  Serious: Yes (Life-Threatening, Hospitalization, Other)
  Sender: FDA-Public Use
  Company Number: FR-MLMSERVICE-20230208-4091000-1

PATIENT
  Age: 59 Year
  Sex: Female

DRUGS (9)
  1. AMLODIPINE [Suspect]
     Active Substance: AMLODIPINE BESYLATE
     Indication: Product used for unknown indication
  2. ATENOLOL [Suspect]
     Active Substance: ATENOLOL
     Indication: Product used for unknown indication
  3. ZOPICLONE [Suspect]
     Active Substance: ZOPICLONE
     Indication: Product used for unknown indication
  4. FLUOXETINE [Concomitant]
     Active Substance: FLUOXETINE HYDROCHLORIDE
  5. ACETAMINOPHEN [Concomitant]
     Active Substance: ACETAMINOPHEN
  6. MIDAZOLAM [Concomitant]
     Active Substance: MIDAZOLAM
  7. FUROSEMIDE [Concomitant]
     Active Substance: FUROSEMIDE
  8. TRIMEPRAZINE [Concomitant]
     Active Substance: TRIMEPRAZINE
  9. KETAMINE [Concomitant]
     Active Substance: KETAMINE

REACTIONS (5)
  - Bradycardia [Unknown]
  - Haemodynamic instability [Unknown]
  - Somnolence [Unknown]
  - Toxicity to various agents [Unknown]
  - Poisoning deliberate [Unknown]
